FAERS Safety Report 17940998 (Version 1)
Quarter: 2020Q2

REPORT INFORMATION
  Report Type: Spontaneous
  Country: US (occurrence: US)
  Receive Date: 20200624
  Receipt Date: 20200624
  Transmission Date: 20200714
  Serious: Yes (Death)
  Sender: FDA-Public Use
  Company Number: None

PATIENT
  Age: 36 Year
  Sex: Male
  Weight: 82.2 kg

DRUGS (22)
  1. CISATRACURIUM. [Concomitant]
     Active Substance: CISATRACURIUM
     Dates: start: 20200619, end: 20200622
  2. INSULIN LISPRO [Concomitant]
     Active Substance: INSULIN LISPRO
     Dates: start: 20200610, end: 20200622
  3. PREGABALIN. [Concomitant]
     Active Substance: PREGABALIN
     Dates: start: 20200611, end: 20200622
  4. ASCORBIC ACID. [Concomitant]
     Active Substance: ASCORBIC ACID
     Dates: start: 20200613, end: 20200622
  5. MIDAZOLAM. [Concomitant]
     Active Substance: MIDAZOLAM
     Dates: start: 20200618, end: 20200619
  6. SODIUM BICARBONATE. [Concomitant]
     Active Substance: SODIUM BICARBONATE
     Dates: start: 20200620, end: 20200620
  7. VITAMIN A [Concomitant]
     Active Substance: VITAMIN A
     Dates: start: 20200613, end: 20200622
  8. DEXAMETHASONE. [Concomitant]
     Active Substance: DEXAMETHASONE
     Dates: start: 20200618, end: 20200622
  9. INSULIN GLARGINE [Concomitant]
     Active Substance: INSULIN GLARGINE
     Dates: start: 20200610, end: 20200622
  10. ROCURONIUM [Concomitant]
     Active Substance: ROCURONIUM BROMIDE
     Dates: start: 20200618, end: 20200618
  11. REMDESIVIR. [Suspect]
     Active Substance: REMDESIVIR
     Indication: COVID-19
     Route: 042
     Dates: start: 20200618, end: 20200622
  12. ATORVASTATIN [Concomitant]
     Active Substance: ATORVASTATIN
     Dates: start: 20200614, end: 20200622
  13. MAGNESIUM SULFATE. [Concomitant]
     Active Substance: MAGNESIUM SULFATE
     Dates: start: 20200618, end: 20200618
  14. PROPOFOL. [Concomitant]
     Active Substance: PROPOFOL
     Dates: start: 20200618, end: 20200620
  15. FERROUS GLUCONATE [Concomitant]
     Active Substance: FERROUS GLUCONATE
     Dates: start: 20200611, end: 20200622
  16. CHOLECALCIFEROL [Concomitant]
     Active Substance: CHOLECALCIFEROL
     Dates: start: 20200613, end: 20200622
  17. FENTANYL. [Concomitant]
     Active Substance: FENTANYL
     Dates: start: 20200618, end: 20200622
  18. ETOMIDATE. [Concomitant]
     Active Substance: ETOMIDATE
     Dates: start: 20200618, end: 20200618
  19. HEPARIN [Concomitant]
     Active Substance: HEPARIN SODIUM
     Dates: start: 20200614, end: 20200622
  20. INSULIN REGULAR [Concomitant]
     Active Substance: INSULIN NOS
     Dates: start: 20200621, end: 20200622
  21. ZINC SULFATE. [Concomitant]
     Active Substance: ZINC SULFATE
     Dates: start: 20200613, end: 20200622
  22. PANTOPRAZOLE [Concomitant]
     Active Substance: PANTOPRAZOLE
     Dates: start: 20200609, end: 20200618

REACTIONS (3)
  - Hypoxia [None]
  - Respiratory acidosis [None]
  - Cardiac arrest [None]

NARRATIVE: CASE EVENT DATE: 20200622
